FAERS Safety Report 7452869-4 (Version None)
Quarter: 2011Q2

REPORT INFORMATION
  Report Type: 
  Country: None (occurrence: None)
  Receive Date: 20110502
  Receipt Date: 20101012
  Transmission Date: 20111010
  Serious: No
  Sender: FDA-Public Use
  Company Number: US-ASTRAZENECA-2010SE48245

PATIENT
  Age: 30731 Day
  Sex: Female
  Weight: 67.6 kg

DRUGS (5)
  1. NEXIUM [Suspect]
     Indication: ULCER
     Route: 048
     Dates: start: 20101008
  2. IMITREX [Concomitant]
     Indication: HEADACHE
  3. NEXIUM [Suspect]
     Indication: HELICOBACTER INFECTION
     Route: 048
     Dates: start: 20101008
  4. TOPROL-XL [Concomitant]
  5. ANTIBIOTICS [Concomitant]

REACTIONS (6)
  - BURNING SENSATION [None]
  - NAUSEA [None]
  - PARAESTHESIA [None]
  - VOMITING [None]
  - RASH PRURITIC [None]
  - HEADACHE [None]
